APPROVED DRUG PRODUCT: ZINC BACITRACIN,NEOMYCIN SULFATE,POLYMYXIN B SULFATE & HYDROCORTISONE
Active Ingredient: BACITRACIN ZINC; HYDROCORTISONE; NEOMYCIN SULFATE; POLYMYXIN B SULFATE
Strength: 400 UNITS/GM;1%;EQ 3.5MG BASE/GM;10,000 UNITS/GM
Dosage Form/Route: OINTMENT;OPHTHALMIC
Application: A062389 | Product #001
Applicant: PHARMAFAIR INC
Approved: Jul 2, 1982 | RLD: No | RS: No | Type: DISCN